FAERS Safety Report 19507636 (Version 1)
Quarter: 2021Q3

REPORT INFORMATION
  Report Type: Other
  Country: IT (occurrence: IT)
  Receive Date: 20210708
  Receipt Date: 20210708
  Transmission Date: 20211014
  Serious: Yes (Death, Hospitalization)
  Sender: FDA-Public Use
  Company Number: IT-ROCHE-2858632

PATIENT
  Age: 56 Year
  Weight: 70 kg

DRUGS (6)
  1. PRALSETINIB. [Suspect]
     Active Substance: PRALSETINIB
     Indication: LUNG NEOPLASM MALIGNANT
     Route: 048
     Dates: end: 20200917
  2. TRIATEC (ITALY) [Concomitant]
     Active Substance: RAMIPRIL
     Indication: HYPERTENSION
     Dosage: 5/25 MG
     Route: 048
     Dates: start: 20200715
  3. CISPLATIN. [Concomitant]
     Active Substance: CISPLATIN
  4. PRALSETINIB. [Suspect]
     Active Substance: PRALSETINIB
     Indication: NON-SMALL CELL LUNG CANCER
     Dosage: DISCONTINUED THE TREATMENT BEFORE 01/APR/2021
     Route: 048
     Dates: start: 20200616
  5. PEMETREXED. [Concomitant]
     Active Substance: PEMETREXED
     Dosage: 4 CYCLES AND THEN MAINTENANCE
  6. ZOLEDRONIC ACID [Concomitant]
     Active Substance: ZOLEDRONIC ACID
     Indication: METASTASES TO BONE
     Dosage: MOST RECENT DOSE 16/JUL/2020
     Route: 042
     Dates: start: 20190923

REACTIONS (3)
  - Pneumonia [Fatal]
  - Sepsis [Fatal]
  - Hypertension [Fatal]

NARRATIVE: CASE EVENT DATE: 20200715
